FAERS Safety Report 4756483-0 (Version None)
Quarter: 2005Q3

REPORT INFORMATION
  Report Type: 
  Country: None (occurrence: None)
  Receive Date: 20050830
  Receipt Date: 20050710
  Transmission Date: 20060218
  Serious: Yes (Other)
  Sender: FDA-Public Use
  Company Number: US-GLAXOSMITHKLINE-A0565748A

PATIENT
  Age: 53 Year
  Sex: Male

DRUGS (4)
  1. WELLBUTRIN [Suspect]
     Indication: DEPRESSION
     Route: 048
  2. DEPAKOTE ER [Concomitant]
  3. OXYCONTIN [Concomitant]
  4. UNSPECIFIED MEDICATIONS [Concomitant]

REACTIONS (1)
  - CONVULSION [None]
